FAERS Safety Report 16667428 (Version 1)
Quarter: 2019Q3

REPORT INFORMATION
  Report Type: Spontaneous
  Country: ES (occurrence: ES)
  Receive Date: 20190805
  Receipt Date: 20190805
  Transmission Date: 20191004
  Serious: Yes (Other)
  Sender: FDA-Public Use
  Company Number: ES-AMGEN-ESPSP2019122212

PATIENT
  Age: 66 Year
  Sex: Female

DRUGS (8)
  1. DIPROSALIC [Concomitant]
     Active Substance: BETAMETHASONE DIPROPIONATE
     Dosage: UNK, QD (CUTANEOUS SOLUTION, 1 VIAL OF 60 G)
     Route: 061
     Dates: start: 20121212
  2. REPATHA [Suspect]
     Active Substance: EVOLOCUMAB
     Indication: HYPERCHOLESTEROLAEMIA
     Dosage: 140 MILLIGRAM, Q2WK
     Route: 058
     Dates: start: 20180611, end: 201901
  3. SEGURIL [Concomitant]
     Active Substance: FUROSEMIDE
     Dosage: 20 MILLIGRAM, QD (40 MG TABLETS, 30 TABLETS)
     Route: 048
     Dates: start: 20160905
  4. SINTROM [Concomitant]
     Active Substance: ACENOCOUMAROL
     Indication: ATRIAL FIBRILLATION
     Dosage: SPL (4 MG TABLETS, 20 TABLETS)
     Route: 048
     Dates: start: 20160406
  5. CANDESARTAN. [Concomitant]
     Active Substance: CANDESARTAN
     Dosage: 0.5 DOSAGE FORM, QD (STADA 16 /12.5 MG TABLETS EFG, 28 TABLETS)
     Route: 048
     Dates: start: 20150128
  6. AVAMYS [Concomitant]
     Active Substance: FLUTICASONE FUROATE
     Dosage: 55 MICROGRAM, Q12H (27.5 MCG / SPRAY, NASAL SPRAY, SUSPENSION, 1 VIAL OF 120 SPRAYS)
     Route: 045
     Dates: start: 20120124
  7. OMEPRAZOLE. [Concomitant]
     Active Substance: OMEPRAZOLE
     Dosage: 20 MILLIGRAM, QD (CINFAMED 20 MG GASTRO-RESISTANT CAPSULES EFG, HARD, 28 CAPSULES)
     Route: 048
     Dates: start: 20160905
  8. AERIUS [Concomitant]
     Dosage: 5 MILLIGRAM, QD (ORODISPERSIBLE TABLETS, 20 TABLETS)
     Route: 048
     Dates: start: 20140218

REACTIONS (1)
  - Infection susceptibility increased [Recovered/Resolved]

NARRATIVE: CASE EVENT DATE: 201809
